FAERS Safety Report 24905754 (Version 1)
Quarter: 2025Q1

REPORT INFORMATION
  Report Type: Report from Study
  Country: US (occurrence: US)
  Receive Date: 20250130
  Receipt Date: 20250130
  Transmission Date: 20250409
  Serious: No
  Sender: HRA PHARMA
  Company Number: US-ORG100014127-2025000019

PATIENT
  Age: 70 Year
  Sex: Male

DRUGS (21)
  1. METOPIRONE [Suspect]
     Active Substance: METYRAPONE
     Indication: Ectopic ACTH syndrome
     Dosage: 1 CAPSULE EVERY 12 HOURS
     Dates: start: 20240829
  2. Advair disku aerosol 250/50 [Concomitant]
     Indication: Product used for unknown indication
  3. amiloride tablet 50mg [Concomitant]
     Indication: Product used for unknown indication
  4. doxepin tablet 6mg [Concomitant]
     Indication: Product used for unknown indication
  5. fluconazole tablet 200mg [Concomitant]
     Indication: Product used for unknown indication
  6. FUROSEMIDE [Concomitant]
     Active Substance: FUROSEMIDE
     Indication: Product used for unknown indication
  7. Hydralazine tablet 25mg [Concomitant]
     Indication: Product used for unknown indication
  8. METFORMIN [Concomitant]
     Active Substance: METFORMIN HYDROCHLORIDE
     Indication: Product used for unknown indication
  9. metoclopram tablet 10mg [Concomitant]
     Indication: Product used for unknown indication
  10. morphine sulfate  tablet 15mg [Concomitant]
     Indication: Product used for unknown indication
  11. Olanzapine tablet 2.5mg [Concomitant]
     Indication: Product used for unknown indication
  12. Ondansetron tablet 8mg ODT [Concomitant]
     Indication: Product used for unknown indication
  13. oxycodone tablet 10mg [Concomitant]
     Indication: Product used for unknown indication
  14. Pantaprazole 40mg tablet [Concomitant]
     Indication: Product used for unknown indication
  15. Potassium chloride tablet 200 meq [Concomitant]
     Indication: Product used for unknown indication
  16. Quetiapine tablet 100mg [Concomitant]
     Indication: Product used for unknown indication
  17. Spiriva spray 2.5mcg [Concomitant]
     Indication: Product used for unknown indication
  18. sucralfate tablet 1GM [Concomitant]
     Indication: Product used for unknown indication
  19. tizanidine capsule 4mg [Concomitant]
     Indication: Product used for unknown indication
  20. tizanidine tablet 2mg [Concomitant]
     Indication: Product used for unknown indication
  21. wixela inhub aerosol [Concomitant]
     Indication: Product used for unknown indication

REACTIONS (1)
  - Off label use [Unknown]

NARRATIVE: CASE EVENT DATE: 20240829
